FAERS Safety Report 6819944-6 (Version None)
Quarter: 2010Q3

REPORT INFORMATION
  Report Type: 
  Country: None (occurrence: None)
  Receive Date: 20100707
  Receipt Date: 20100623
  Transmission Date: 20110219
  Serious: No
  Sender: FDA-Public Use
  Company Number: US-B.I. PHARMACEUTICALS,INC./RIDGEFIELD-2010-BP-07108BP

PATIENT
  Age: 61 Year
  Sex: Male

DRUGS (4)
  1. MICARDIS HCT [Suspect]
     Indication: HYPERTENSION
     Route: 048
     Dates: start: 20100501
  2. VITAMINS [Concomitant]
     Indication: PROPHYLAXIS
  3. POTASSIUM CHLORIDE [Concomitant]
     Indication: PROPHYLAXIS
  4. LOVAZA [Concomitant]
     Indication: PROPHYLAXIS

REACTIONS (1)
  - LIBIDO DECREASED [None]
